FAERS Safety Report 5301154-5 (Version None)
Quarter: 2007Q2

REPORT INFORMATION
  Report Type: 
  Country: None (occurrence: None)
  Receive Date: 20070418
  Receipt Date: 20070410
  Transmission Date: 20071010
  Serious: Yes (Other)
  Sender: FDA-Public Use
  Company Number: US-PFIZER INC-2006134213

PATIENT
  Sex: Female

DRUGS (2)
  1. CELEBREX [Suspect]
     Indication: ARTHRITIS
     Dates: start: 20010214, end: 20010627
  2. VIOXX [Suspect]

REACTIONS (3)
  - CARDIOVASCULAR DISORDER [None]
  - INSOMNIA [None]
  - MYOCARDIAL INFARCTION [None]
